FAERS Safety Report 12052745 (Version 3)
Quarter: 2016Q1

REPORT INFORMATION
  Report Type: Spontaneous
  Country: US (occurrence: US)
  Receive Date: 20160209
  Receipt Date: 20160311
  Transmission Date: 20160526
  Serious: No
  Sender: FDA-Public Use
  Company Number: US-GLAXOSMITHKLINE-US2016014511

PATIENT
  Sex: Male

DRUGS (1)
  1. VENTOLIN [Suspect]
     Active Substance: ALBUTEROL SULFATE
     Indication: ASTHMA
     Dosage: UNK

REACTIONS (6)
  - Intentional product misuse [Unknown]
  - Drug ineffective [Recovered/Resolved]
  - Drug dose omission [Unknown]
  - Medication error [Unknown]
  - Asthma [Unknown]
  - Product quality issue [Unknown]
